FAERS Safety Report 25088818 (Version 1)
Quarter: 2025Q1

REPORT INFORMATION
  Report Type: Spontaneous
  Country: HR (occurrence: HR)
  Receive Date: 20250318
  Receipt Date: 20250318
  Transmission Date: 20250408
  Serious: Yes (Other)
  Sender: CHEPLAPHARM
  Company Number: None

PATIENT
  Age: 16 Year
  Sex: Female
  Weight: 57 kg

DRUGS (3)
  1. OLANZAPINE [Suspect]
     Active Substance: OLANZAPINE
     Dosage: EVERY 1 DAY; INGESTION; IN THE AFTERNOON SHE TOOK 100 MG OF OLANZAPINE (NORMALLY TAKING IT)
     Route: 048
     Dates: start: 20250122, end: 20250122
  2. IBUPROFEN [Suspect]
     Active Substance: IBUPROFEN
     Dosage: 2000 MG OF IBUPROFEN?DAILY DOSE: 2000 MILLIGRAM
     Route: 048
     Dates: start: 20250122, end: 20250122
  3. ACETAMINOPHEN [Suspect]
     Active Substance: ACETAMINOPHEN
     Dosage: 5000 MG OF PARACETAMOL?DAILY DOSE: 5000 MILLIGRAM
     Route: 048
     Dates: start: 20250122, end: 20250122

REACTIONS (3)
  - Suicide attempt [Unknown]
  - Somnolence [Unknown]
  - Intentional overdose [Unknown]

NARRATIVE: CASE EVENT DATE: 20250122
